FAERS Safety Report 8763361 (Version 1)
Quarter: 2012Q4

REPORT INFORMATION
  Report Type: 
  Country: US (occurrence: US)
  Receive Date: 20120831
  Receipt Date: 20120831
  Transmission Date: 20130627
  Serious: No
  Sender: FDA-Public Use
  Company Number: US-009507513-1206USA04972

PATIENT

DRUGS (1)
  1. SINGULAIR [Suspect]
     Dosage: 10 mg, qd

REACTIONS (1)
  - Drug hypersensitivity [Unknown]
